FAERS Safety Report 9309157 (Version 1)
Quarter: 2013Q2

REPORT INFORMATION
  Report Type: Spontaneous
  Country: US (occurrence: US)
  Receive Date: 20130525
  Receipt Date: 20130525
  Transmission Date: 20140414
  Serious: Yes (Other)
  Sender: FDA-Public Use
  Company Number: US-BRISTOL-MYERS SQUIBB COMPANY-18577338

PATIENT
  Age: 71 None
  Sex: Male

DRUGS (1)
  1. BYETTA PEN DISPOSABLE [Suspect]
     Route: 058

REACTIONS (1)
  - Pancreatitis [Unknown]
